FAERS Safety Report 7313947-3 (Version None)
Quarter: 2011Q1

REPORT INFORMATION
  Report Type: 
  Country: None (occurrence: None)
  Receive Date: 20110215
  Receipt Date: 20110203
  Transmission Date: 20110831
  Serious: Yes (Other)
  Sender: FDA-Public Use
  Company Number: US-004685

PATIENT
  Sex: Female

DRUGS (1)
  1. TRANEXAMIC ACID [Suspect]
     Indication: MENORRHAGIA
     Dosage: (ORAL)
     Route: 048
     Dates: start: 20110203

REACTIONS (3)
  - DYSPEPSIA [None]
  - CHEST DISCOMFORT [None]
  - THROAT TIGHTNESS [None]
